FAERS Safety Report 20661775 (Version 2)
Quarter: 2022Q2

REPORT INFORMATION
  Report Type: Spontaneous
  Country: DE (occurrence: DE)
  Receive Date: 20220401
  Receipt Date: 20220406
  Transmission Date: 20220721
  Serious: Yes (Hospitalization)
  Sender: FDA-Public Use
  Company Number: DE-NOVARTISPH-NVSC2022DE071684

PATIENT
  Sex: Male

DRUGS (1)
  1. METHOTREXATE SODIUM [Suspect]
     Active Substance: METHOTREXATE SODIUM
     Indication: Product used for unknown indication
     Dosage: 2 DOSAGE FORM, QW
     Route: 065
     Dates: end: 20220225

REACTIONS (7)
  - General physical health deterioration [Unknown]
  - Generalised oedema [Unknown]
  - Red blood cell count abnormal [Unknown]
  - Renal function test abnormal [Unknown]
  - Dyspnoea [Unknown]
  - Fatigue [Unknown]
  - Incorrect dose administered [Unknown]
